FAERS Safety Report 4675018-4 (Version None)
Quarter: 2005Q2

REPORT INFORMATION
  Report Type: 
  Country: None (occurrence: None)
  Receive Date: 20050526
  Receipt Date: 20050523
  Transmission Date: 20051028
  Serious: Yes (Hospitalization, Other)
  Sender: FDA-Public Use
  Company Number: 2013362

PATIENT
  Age: 25 Year
  Sex: Female
  Weight: 86.2 kg

DRUGS (8)
  1. OXYCONTIN [Suspect]
     Indication: CANCER PAIN
     Dosage: 40 MG, Q8H, ORAL
     Route: 048
  2. SOMA [Concomitant]
  3. NAPROSYN [Concomitant]
  4. ALLEGRA-D (FEXOFENADINE, PSEUDOEHEDRINE HYDROCHLORIDE) [Concomitant]
  5. PEPCID 9FAMOTIDINE) [Concomitant]
  6. DIPROLENE AF 9BETAMETHASONE DIPROPIONATE) [Concomitant]
  7. PHENERGAN ^NATRAPHARM^ (PROMETHIAZINE HYDROCHLORIDE) [Concomitant]
  8. INDOCIN [Concomitant]

REACTIONS (19)
  - ABDOMINAL PAIN UPPER [None]
  - ANXIETY [None]
  - CONTUSION [None]
  - CYST [None]
  - DRUG DEPENDENCE [None]
  - DYSMENORRHOEA [None]
  - DYSPEPSIA [None]
  - EMOTIONAL DISTRESS [None]
  - FALL [None]
  - FLATULENCE [None]
  - GANGLION [None]
  - OVARIAN CYST [None]
  - PAIN [None]
  - RASH ERYTHEMATOUS [None]
  - RHINITIS ALLERGIC [None]
  - SKIN DISORDER [None]
  - URINARY TRACT INFECTION [None]
  - VAGINAL HAEMORRHAGE [None]
  - WEIGHT DECREASED [None]
